FAERS Safety Report 5758301-0 (Version None)
Quarter: 2008Q2

REPORT INFORMATION
  Report Type: 
  Country: None (occurrence: None)
  Receive Date: 20080604
  Receipt Date: 20080527
  Transmission Date: 20081010
  Serious: Yes (Other)
  Sender: FDA-Public Use
  Company Number: US-JNJFOC-20071205656

PATIENT
  Sex: Male
  Weight: 72.58 kg

DRUGS (25)
  1. TOPAMAX [Suspect]
     Route: 048
  2. TOPAMAX [Suspect]
     Route: 048
  3. TOPAMAX [Suspect]
     Indication: BIPOLAR DISORDER
     Route: 048
  4. TOPAMAX [Suspect]
     Indication: ESSENTIAL TREMOR
     Route: 048
  5. LITHIUM CARBONATE [Concomitant]
  6. DEPAKOTE [Concomitant]
  7. LEXAPRO [Concomitant]
  8. PLAVIX [Concomitant]
  9. VYTORIN [Concomitant]
  10. ASPIRIN [Concomitant]
  11. ALLEGRA-D [Concomitant]
  12. ZANTAC [Concomitant]
  13. APRAZOLAM [Concomitant]
  14. AMITRIPTYLENE [Concomitant]
     Indication: CYCLIC VOMITING SYNDROME
  15. ZOFRAN [Concomitant]
     Indication: CYCLIC VOMITING SYNDROME
  16. FROVA [Concomitant]
     Indication: CYCLIC VOMITING SYNDROME
  17. NICOTINE [Concomitant]
  18. SEROQUEL [Concomitant]
  19. NABUMETONE [Concomitant]
     Indication: DRUG USE FOR UNKNOWN INDICATION
     Route: 048
  20. ALAZOPRAM [Concomitant]
  21. LIPITOR [Concomitant]
  22. FLONASE [Concomitant]
  23. INDERAL [Concomitant]
  24. SYNTHROID [Concomitant]
  25. SUPPLEMENTS [Concomitant]
     Indication: MEDICAL DIET

REACTIONS (8)
  - DEPRESSION [None]
  - FATIGUE [None]
  - LIVER FUNCTION TEST ABNORMAL [None]
  - MANIA [None]
  - MOOD ALTERED [None]
  - SUICIDAL IDEATION [None]
  - TOOTH DISCOLOURATION [None]
  - TREMOR [None]
